FAERS Safety Report 23832959 (Version 1)
Quarter: 2024Q2

REPORT INFORMATION
  Report Type: Spontaneous
  Country: US (occurrence: None)
  Receive Date: 20240507
  Receipt Date: 20240507
  Transmission Date: 20240716
  Serious: Yes (Other)
  Sender: FDA-Public Use
  Company Number: None

PATIENT
  Age: 62 Year
  Sex: Female

DRUGS (1)
  1. CINACALCET HYDROCHLORIDE [Suspect]
     Active Substance: CINACALCET HYDROCHLORIDE
     Indication: End stage renal disease
     Dosage: OTHER FREQUENCY : D WTH LARGEST MEAL;?
     Route: 048
     Dates: start: 20230627

REACTIONS (1)
  - Renal transplant [None]

NARRATIVE: CASE EVENT DATE: 20240415
